FAERS Safety Report 18107900 (Version 3)
Quarter: 2021Q4

REPORT INFORMATION
  Report Type: Spontaneous
  Country: US (occurrence: PR)
  Receive Date: 20200804
  Receipt Date: 20211201
  Transmission Date: 20220303
  Serious: No
  Sender: FDA-Public Use
  Company Number: US-PFIZER INC-2020272098

PATIENT
  Age: 16 Year
  Sex: Male
  Weight: 56.7 kg

DRUGS (1)
  1. GENOTROPIN [Suspect]
     Active Substance: SOMATROPIN
     Indication: Growth hormone deficiency
     Dosage: 1.8 MG (INJECTION, 6 DAYS A WEEK)
     Dates: start: 202001

REACTIONS (4)
  - Drug dose omission by device [Unknown]
  - Poor quality product administered [Unknown]
  - Device issue [Unknown]
  - Product physical issue [Unknown]

NARRATIVE: CASE EVENT DATE: 20200702
